FAERS Safety Report 7467813-3 (Version None)
Quarter: 2011Q2

REPORT INFORMATION
  Report Type: 
  Country: None (occurrence: None)
  Receive Date: 20110509
  Receipt Date: 20110106
  Transmission Date: 20111010
  Serious: No
  Sender: FDA-Public Use
  Company Number: US-ALEXION-A201100024

PATIENT
  Sex: Female

DRUGS (7)
  1. SOLIRIS [Suspect]
     Indication: PAROXYSMAL NOCTURNAL HAEMOGLOBINURIA
     Route: 042
  2. EXJADE [Concomitant]
     Indication: IRON OVERLOAD
     Dosage: UNK
     Route: 048
  3. LEXAPRO [Concomitant]
     Indication: DEPRESSION
     Dosage: 10 MG, QD
     Route: 048
  4. LOESTRIN 1.5/30 [Concomitant]
     Indication: CONTRACEPTION
     Dosage: UNK
     Route: 048
  5. MULTI-VITAMINS [Concomitant]
     Dosage: UNK
     Route: 048
  6. SOLIRIS [Suspect]
     Dosage: 1200 MG, Q2W
     Route: 042
  7. FOLIC ACID [Concomitant]
     Dosage: 1 MG, QD
     Route: 048

REACTIONS (3)
  - CHEST PAIN [None]
  - CHEST DISCOMFORT [None]
  - HAEMOGLOBIN DECREASED [None]
